FAERS Safety Report 8520263-0 (Version None)
Quarter: 2012Q3

REPORT INFORMATION
  Report Type: 
  Country: None (occurrence: None)
  Receive Date: 20120712
  Receipt Date: 20120712
  Transmission Date: 20120928
  Serious: Yes (Hospitalization)
  Sender: FDA-Public Use
  Company Number: None

PATIENT
  Sex: Female

DRUGS (11)
  1. ASPIRIN [Concomitant]
  2. CALCIUM CARB [Concomitant]
  3. PROGRAF [Suspect]
     Dosage: PROGRAF 0.5MG ONCE BY MOUTH
     Route: 048
  4. FISH OIL [Concomitant]
  5. DILAUDID [Concomitant]
  6. COUMADIN [Concomitant]
  7. LASIX,MAG-OX [Concomitant]
  8. PROGRAF [Suspect]
     Indication: LIVER TRANSPLANT
     Dosage: PROGRAF 1.0MG TWICE DAILY BY MOUTH
     Route: 048
  9. ENALAPRIL MALEATE [Concomitant]
  10. MYCOPHENOLATE MOFETIL [Concomitant]
  11. MULTI-VITAMIN [Concomitant]

REACTIONS (6)
  - HYPERTENSION [None]
  - VOMITING [None]
  - GASTROINTESTINAL DISORDER [None]
  - MALNUTRITION [None]
  - NAUSEA [None]
  - THROMBOSIS [None]
